FAERS Safety Report 5047124-6 (Version None)
Quarter: 2006Q3

REPORT INFORMATION
  Report Type: 
  Country: None (occurrence: None)
  Receive Date: 20060703
  Receipt Date: 20060622
  Transmission Date: 20061208
  Serious: Yes (Life-Threatening, Hospitalization)
  Sender: FDA-Public Use
  Company Number: 2006076729

PATIENT
  Sex: 0

DRUGS (1)
  1. LYRICA [Suspect]
     Indication: AFFECTIVE DISORDER
     Dosage: ORAL
     Route: 048
     Dates: start: 20051001

REACTIONS (1)
  - CARDIAC FAILURE CONGESTIVE [None]
